FAERS Safety Report 19855119 (Version 1)
Quarter: 2021Q3

REPORT INFORMATION
  Report Type: Spontaneous
  Country: US (occurrence: US)
  Receive Date: 20210918
  Receipt Date: 20210918
  Transmission Date: 20211014
  Serious: Yes (Other)
  Sender: FDA-Public Use
  Company Number: None

PATIENT
  Age: 64 Year
  Sex: Male
  Weight: 108 kg

DRUGS (4)
  1. XARELTO [Concomitant]
     Active Substance: RIVAROXABAN
  2. SUTAB [Suspect]
     Active Substance: MAGNESIUM SULFATE\POTASSIUM CHLORIDE\SODIUM SULFATE
     Indication: BOWEL PREPARATION
     Dosage: ?          QUANTITY:24 TABLET(S);OTHER FREQUENCY:12 TABS 2X;?
     Route: 048
     Dates: start: 20210917, end: 20210917
  3. DILITIAZEM [Concomitant]
     Active Substance: DILTIAZEM
  4. ALLOPPURINOL [Concomitant]

REACTIONS (5)
  - Chills [None]
  - Muscle spasms [None]
  - Drug ineffective [None]
  - Bedridden [None]
  - Dehydration [None]

NARRATIVE: CASE EVENT DATE: 20210918
